FAERS Safety Report 23677229 (Version 2)
Quarter: 2024Q2

REPORT INFORMATION
  Report Type: Report from Study
  Country: US (occurrence: US)
  Receive Date: 20240327
  Receipt Date: 20240405
  Transmission Date: 20240716
  Serious: Yes (Hospitalization)
  Sender: FDA-Public Use
  Company Number: US-ABBVIE-5690816

PATIENT
  Age: 55 Year
  Sex: Female

DRUGS (3)
  1. SKYRIZI [Suspect]
     Active Substance: RISANKIZUMAB-RZAA
     Indication: Psoriasis
     Dosage: FORM STRENGTH: 150 MILLIGRAM,?WEEK 4 THEN EVERY 12 WEEKS THEREAFTER
     Route: 058
     Dates: start: 20240103
  2. SKYRIZI [Suspect]
     Active Substance: RISANKIZUMAB-RZAA
     Dosage: FORM STRENGTH: 150 MILLIGRAM, ?WEEK 0
     Route: 058
     Dates: start: 20231206, end: 20231206
  3. LISINOPRIL [Suspect]
     Active Substance: LISINOPRIL
     Indication: Product used for unknown indication
     Route: 065

REACTIONS (3)
  - Drug hypersensitivity [Unknown]
  - Psoriasis [Unknown]
  - Hypertension [Unknown]

NARRATIVE: CASE EVENT DATE: 20240301
